FAERS Safety Report 22392123 (Version 1)
Quarter: 2023Q2

REPORT INFORMATION
  Report Type: Spontaneous
  Country: US (occurrence: US)
  Receive Date: 20230601
  Receipt Date: 20230601
  Transmission Date: 20230722
  Serious: Yes (Congenital Anomaly, Other)
  Sender: FDA-Public Use
  Company Number: US-002147023-NVSC2023US119873

PATIENT

DRUGS (2)
  1. HYDROXYCHLOROQUINE SULFATE [Suspect]
     Active Substance: HYDROXYCHLOROQUINE SULFATE
     Indication: Foetal exposure during pregnancy
     Dosage: MATERNAL DOSE: UNK
     Route: 064
  2. AZATHIOPRINE [Suspect]
     Active Substance: AZATHIOPRINE
     Indication: Foetal exposure during pregnancy
     Dosage: MATERNAL DOSE:UNK
     Route: 064

REACTIONS (5)
  - Neonatal lupus erythematosus [Unknown]
  - Gestational alloimmune liver disease [Unknown]
  - Foetal growth restriction [Unknown]
  - Autoimmune hepatitis [Unknown]
  - Foetal exposure during pregnancy [Unknown]
